FAERS Safety Report 20952441 (Version 1)
Quarter: 2022Q2

REPORT INFORMATION
  Report Type: Spontaneous
  Country: US (occurrence: None)
  Receive Date: 20220612
  Receipt Date: 20220612
  Transmission Date: 20220720
  Serious: Yes (Life-Threatening, Hospitalization)
  Sender: FDA-Public Use
  Company Number: None

PATIENT
  Age: 74 Year
  Sex: Female
  Weight: 72.5 kg

DRUGS (1)
  1. GADOTERIDOL [Suspect]
     Active Substance: GADOTERIDOL
     Indication: Scan with contrast
     Dosage: FREQUENCY : ONCE;?
     Route: 048
     Dates: start: 20220308, end: 20220308

REACTIONS (6)
  - Rash erythematous [None]
  - Cardiopulmonary failure [None]
  - Extubation [None]
  - Post procedural complication [None]
  - Dysphonia [None]
  - Contrast media reaction [None]

NARRATIVE: CASE EVENT DATE: 20220308
